FAERS Safety Report 19702598 (Version 12)
Quarter: 2022Q1

REPORT INFORMATION
  Report Type: Report from Study
  Country: DE (occurrence: None)
  Receive Date: 20210815
  Receipt Date: 20220307
  Transmission Date: 20220424
  Serious: Yes (Hospitalization)
  Sender: FDA-Public Use
  Company Number: DE-ROCHE-2874685

PATIENT
  Age: 50 Year
  Sex: Female
  Weight: 75 kg

DRUGS (23)
  1. ATEZOLIZUMAB [Suspect]
     Active Substance: ATEZOLIZUMAB
     Indication: Triple negative breast cancer
     Dosage: DATE OF LAST DOSE OF ATEZOLIZUMAB: 07/JUL/2021, 28/JUL/2021, 19/AUG/2021 AND 08/SEP/2021
     Route: 041
     Dates: start: 20210616
  2. PACLITAXEL [Suspect]
     Active Substance: PACLITAXEL
     Indication: Triple negative breast cancer
     Dosage: DATE OF LAST DOSE 151 MG OF PACLITAXEL: 07/JUL/2021?DATE OF LAST DOSE 151 MG OF PACLITAXEL PRIOR TO
     Route: 042
     Dates: start: 20210616
  3. PACLITAXEL [Suspect]
     Active Substance: PACLITAXEL
     Route: 042
  4. CARBOPLATIN [Suspect]
     Active Substance: CARBOPLATIN
     Indication: Triple negative breast cancer
     Dosage: AREA UNDER THE CURVE OF 2?DATE OF LAST 300 MG DOSE OF CARBOPLATIN: 07/JUL/2021?DATE OF LAST DOSE 300
     Route: 042
     Dates: start: 20210616
  5. CARBOPLATIN [Suspect]
     Active Substance: CARBOPLATIN
     Route: 042
  6. CARBOPLATIN [Suspect]
     Active Substance: CARBOPLATIN
     Route: 042
  7. EPIRUBICIN [Suspect]
     Active Substance: EPIRUBICIN
     Indication: Triple negative breast cancer
     Dosage: DATE OF LAST DOSE PRIOR TO SAE: 08/SEP/2021
     Route: 042
     Dates: start: 20210908
  8. CYCLOPHOSPHAMIDE [Suspect]
     Active Substance: CYCLOPHOSPHAMIDE
     Indication: Triple negative breast cancer
     Dosage: DATE OF LAST DOSE PRIOR TO SAE: 08/SEP/2021
     Route: 042
     Dates: start: 20210908
  9. AKYNZEO [Concomitant]
     Active Substance: NETUPITANT\PALONOSETRON HYDROCHLORIDE
     Dates: start: 20210726, end: 20211110
  10. AKYNZEO [Concomitant]
     Active Substance: NETUPITANT\PALONOSETRON HYDROCHLORIDE
     Dates: start: 20210726
  11. DEXAMETHASONE [Concomitant]
     Active Substance: DEXAMETHASONE
     Dates: start: 20210616, end: 20211110
  12. DEXAMETHASONE [Concomitant]
     Active Substance: DEXAMETHASONE
     Dates: start: 20210623, end: 20210902
  13. DIMETHINDENE MALEATE [Concomitant]
     Active Substance: DIMETHINDENE MALEATE
     Dates: start: 20210616, end: 20210902
  14. DIMETHINDENE [Concomitant]
     Active Substance: DIMETHINDENE
     Dates: start: 20210708, end: 20210902
  15. POTASSIUM CARBONATE\POTASSIUM CITRATE [Concomitant]
     Active Substance: POTASSIUM CARBONATE\POTASSIUM CITRATE
     Dates: start: 20210708, end: 20210710
  16. ONDANSETRON [Concomitant]
     Active Substance: ONDANSETRON
     Route: 042
     Dates: start: 20210728, end: 20210728
  17. FULPHILA (UNITED STATES) [Concomitant]
     Dates: start: 20210802, end: 20211110
  18. OLANZAPINE [Concomitant]
     Active Substance: OLANZAPINE
     Dates: start: 20210802, end: 20211110
  19. METRONIDAZOLE [Concomitant]
     Active Substance: METRONIDAZOLE
     Dates: start: 201505, end: 20210902
  20. OMEPRAZOLE [Concomitant]
     Active Substance: OMEPRAZOLE
     Dates: start: 20210722, end: 20211202
  21. IBUPROFEN [Concomitant]
     Active Substance: IBUPROFEN
     Dates: start: 20210723, end: 20211201
  22. AMOXICILLIN\CLAVULANATE POTASSIUM [Concomitant]
     Active Substance: AMOXICILLIN\CLAVULANATE POTASSIUM
  23. DIMENHYDRINATE [Concomitant]
     Active Substance: DIMENHYDRINATE

REACTIONS (4)
  - Pyrexia [Recovered/Resolved]
  - Liver function test increased [Recovered/Resolved]
  - Fatigue [Recovered/Resolved with Sequelae]
  - Anaemia [Recovered/Resolved]

NARRATIVE: CASE EVENT DATE: 20210707
